FAERS Safety Report 8919504 (Version 1)
Quarter: 2012Q4

REPORT INFORMATION
  Report Type: 
  Country: FR (occurrence: FR)
  Receive Date: 20121121
  Receipt Date: 20121121
  Transmission Date: 20130627
  Serious: Yes (Congenital Anomaly)
  Sender: FDA-Public Use
  Company Number: FR-BAYER-2012-118345

PATIENT
  Sex: Male

DRUGS (1)
  1. QLAIRA [Suspect]
     Route: 064

REACTIONS (2)
  - Exposure during pregnancy [None]
  - Hypospadias [None]
